FAERS Safety Report 15331813 (Version 2)
Quarter: 2018Q4

REPORT INFORMATION
  Report Type: Spontaneous
  Country: AU (occurrence: AU)
  Receive Date: 20180829
  Receipt Date: 20181022
  Transmission Date: 20190204
  Serious: Yes (Life-Threatening, Hospitalization, Other)
  Sender: FDA-Public Use
  Company Number: AU-B.I. PHARMACEUTICALS,INC./RIDGEFIELD-2018-BI-042464

PATIENT
  Age: 78 Year
  Sex: Male

DRUGS (6)
  1. JARDIAMET [Suspect]
     Active Substance: EMPAGLIFLOZIN\METFORMIN HYDROCHLORIDE
     Indication: TYPE 2 DIABETES MELLITUS
     Dosage: STRENGTH: 12.5/1000 MILLIGRAM, DAILY DOSE: 25/2 GMS
     Route: 065
     Dates: end: 20180819
  2. SOMAC [Concomitant]
     Active Substance: PANTOPRAZOLE SODIUM
     Indication: PRODUCT USED FOR UNKNOWN INDICATION
     Route: 065
  3. ASPIRIN. [Concomitant]
     Active Substance: ASPIRIN
     Indication: PRODUCT USED FOR UNKNOWN INDICATION
     Route: 065
  4. GLICLAZIDE [Concomitant]
     Active Substance: GLICLAZIDE
     Indication: PRODUCT USED FOR UNKNOWN INDICATION
     Route: 065
  5. ROSUVASTATIN. [Concomitant]
     Active Substance: ROSUVASTATIN
     Indication: PRODUCT USED FOR UNKNOWN INDICATION
     Route: 065
  6. TRAJENTA [Concomitant]
     Active Substance: LINAGLIPTIN
     Indication: PRODUCT USED FOR UNKNOWN INDICATION
     Route: 065

REACTIONS (8)
  - Sepsis [Unknown]
  - Gastrooesophageal reflux disease [Unknown]
  - Diabetic ketoacidosis [Recovered/Resolved]
  - Inflammation [Unknown]
  - Vomiting [Unknown]
  - Pneumonia [Unknown]
  - Oxygen saturation decreased [Unknown]
  - Hypertension [Unknown]

NARRATIVE: CASE EVENT DATE: 20180819
